FAERS Safety Report 8873929 (Version 5)
Quarter: 2013Q3

REPORT INFORMATION
  Report Type: Spontaneous
  Country: US (occurrence: US)
  Receive Date: 20121023
  Receipt Date: 20130712
  Transmission Date: 20140515
  Serious: Yes (Hospitalization, Other)
  Sender: FDA-Public Use
  Company Number: US-009507513-1203USA00318

PATIENT
  Sex: Female

DRUGS (5)
  1. FOSAMAX PLUS D [Suspect]
     Indication: OSTEOPENIA
     Dosage: 70 MG-2800  IU, QW
     Route: 048
     Dates: start: 2006, end: 201009
  2. FOSAMAX PLUS D [Suspect]
     Indication: OSTEOPOROSIS
  3. FOSAMAX [Suspect]
     Indication: OSTEOPOROSIS
     Dosage: 70 MG, QW
     Route: 048
     Dates: start: 2006, end: 2010
  4. VITAMINS (UNSPECIFIED) [Concomitant]
     Dosage: UNK, QD
     Dates: start: 1990
  5. CALCIUM (UNSPECIFIED) (+) VITAMIN D (UNSPECIFIED) [Concomitant]
     Dosage: UNK, BID
     Dates: start: 1990

REACTIONS (14)
  - Femur fracture [Unknown]
  - Open reduction of fracture [Unknown]
  - Hypokalaemia [Unknown]
  - Iron deficiency anaemia [Unknown]
  - Anaemia postoperative [Unknown]
  - Thrombocytopenia [Unknown]
  - Blood bilirubin increased [Unknown]
  - Arthralgia [Unknown]
  - Cataract [Unknown]
  - Atrophic vulvovaginitis [Unknown]
  - Phlebitis [Unknown]
  - Venous insufficiency [Unknown]
  - Hypertension [Unknown]
  - Varicose vein [Unknown]
